FAERS Safety Report 15205695 (Version 1)
Quarter: 2018Q3

REPORT INFORMATION
  Report Type: Spontaneous
  Country: GB (occurrence: GB)
  Receive Date: 20180727
  Receipt Date: 20180727
  Transmission Date: 20181010
  Serious: Yes (Other)
  Sender: FDA-Public Use
  Company Number: GB-TEVA-2018-GB-929961

PATIENT
  Age: 44 Year
  Sex: Female
  Weight: 80 kg

DRUGS (13)
  1. NAPROXEN. [Suspect]
     Active Substance: NAPROXEN
     Route: 065
     Dates: start: 20180621
  2. FEXOFENADINE [Concomitant]
     Active Substance: FEXOFENADINE\FEXOFENADINE HYDROCHLORIDE
     Indication: SEASONAL ALLERGY
     Dosage: 1 DOSAGE FORMS DAILY;
     Route: 065
     Dates: start: 20170410
  3. SODIUM CROMOGLICATE [Concomitant]
     Active Substance: CROMOLYN SODIUM
     Dosage: 3 DOSAGE FORMS DAILY;
     Route: 065
     Dates: start: 20171113
  4. LYMECYCLINE [Concomitant]
     Active Substance: LYMECYCLINE
     Dosage: 1 DOSAGE FORMS DAILY; PLEASE REVIEW WITH THE DOCTOR B...
     Route: 065
     Dates: start: 20180615
  5. BENZOYL PEROXIDE. [Concomitant]
     Active Substance: BENZOYL PEROXIDE
     Dosage: 2 DOSAGE FORMS DAILY;
     Route: 065
     Dates: start: 20170914
  6. HYDROMOL EMOLLIENT [Concomitant]
     Dosage: USE AS DIRECTED
     Route: 065
     Dates: start: 20170914
  7. COCODAMOL [Concomitant]
     Active Substance: ACETAMINOPHEN\CODEINE PHOSPHATE
     Dosage: TAKE 1 OR 2 FOUR TIMES DAILY
     Route: 065
     Dates: start: 20180615
  8. AMITRIPTYLINE HYDROCHLORIDE. [Concomitant]
     Active Substance: AMITRIPTYLINE HYDROCHLORIDE
     Dosage: 1?2 NOCTE
     Route: 065
     Dates: start: 20170504
  9. TIMOLOL. [Concomitant]
     Active Substance: TIMOLOL
     Dosage: BOTH EYES, MANE
     Route: 047
     Dates: start: 20180306
  10. SALBUTAMOL [Concomitant]
     Active Substance: ALBUTEROL
     Dosage: TWO PUFFS VIA SPACER
     Route: 055
     Dates: start: 20170504
  11. SERTRALINE [Concomitant]
     Active Substance: SERTRALINE HYDROCHLORIDE
     Dosage: 1 DOSAGE FORMS DAILY; EACH MORNING
     Route: 065
     Dates: start: 20180306
  12. FLUTICASONE FUROATE [Concomitant]
     Active Substance: FLUTICASONE FUROATE
     Dosage: 2 DOSAGE FORMS DAILY; PUFFS
     Route: 065
     Dates: start: 20160826
  13. SUMATRIPTAN. [Concomitant]
     Active Substance: SUMATRIPTAN
     Dosage: TAKE ONE AS DIRECTED. DOSE MAY BE REPEATED AFTE...
     Route: 065
     Dates: start: 20180530

REACTIONS (1)
  - Peripheral swelling [Recovering/Resolving]

NARRATIVE: CASE EVENT DATE: 20180621
